FAERS Safety Report 25628329 (Version 6)
Quarter: 2025Q4

REPORT INFORMATION
  Report Type: Spontaneous
  Country: CO (occurrence: CO)
  Receive Date: 20250731
  Receipt Date: 20251006
  Transmission Date: 20260118
  Serious: No
  Sender: PFIZER
  Company Number: CO-PFIZER INC-PV202500091550

PATIENT
  Age: 13 Year
  Sex: Male
  Weight: 43.8 kg

DRUGS (1)
  1. GENOTROPIN [Suspect]
     Active Substance: SOMATROPIN
     Indication: Short stature
     Dosage: 1.2 MG, DAILY
     Dates: start: 20250301

REACTIONS (6)
  - Injection site haemorrhage [Recovered/Resolved]
  - Device physical property issue [Unknown]
  - Incorrect dose administered [Unknown]
  - Wrong technique in device usage process [Unknown]
  - Off label use [Unknown]
  - Incorrect route of product administration [Unknown]

NARRATIVE: CASE EVENT DATE: 20250724
